FAERS Safety Report 5196236-5 (Version None)
Quarter: 2007Q1

REPORT INFORMATION
  Report Type: 
  Country: None (occurrence: None)
  Receive Date: 20070102
  Receipt Date: 20061228
  Transmission Date: 20070707
  Serious: Yes (Hospitalization)
  Sender: FDA-Public Use
  Company Number: US-BOEHRINGER INGELHEIM PHARMACEUTICALS, INC.-2006-BP-15103BP

PATIENT
  Age: 74 Year
  Sex: Male

DRUGS (29)
  1. SPIRIVA [Suspect]
     Indication: CHRONIC OBSTRUCTIVE PULMONARY DISEASE
     Route: 055
     Dates: start: 20060901, end: 20061224
  2. ATROVENT HFA [Concomitant]
     Indication: CHRONIC OBSTRUCTIVE PULMONARY DISEASE
     Route: 055
     Dates: end: 20060901
  3. AZMACORT [Concomitant]
     Indication: CHRONIC OBSTRUCTIVE PULMONARY DISEASE
     Route: 055
     Dates: end: 20060901
  4. ADVAIR DISKUS 100/50 [Concomitant]
     Indication: CHRONIC OBSTRUCTIVE PULMONARY DISEASE
     Route: 055
     Dates: start: 20060901
  5. ALBUTEROL [Concomitant]
     Indication: CHRONIC OBSTRUCTIVE PULMONARY DISEASE
     Route: 055
     Dates: end: 20060901
  6. ALBUTEROL [Concomitant]
     Route: 055
  7. XOPENEX [Concomitant]
     Indication: CHRONIC OBSTRUCTIVE PULMONARY DISEASE
     Route: 055
     Dates: start: 20060901
  8. IPRATROPIUM BROMIDE [Concomitant]
     Indication: CHRONIC OBSTRUCTIVE PULMONARY DISEASE
     Route: 055
     Dates: start: 20061225
  9. LORATADINE [Concomitant]
     Indication: MULTIPLE ALLERGIES
     Route: 048
  10. MONTELUKAST [Concomitant]
     Indication: MULTIPLE ALLERGIES
     Route: 048
  11. DIPHENHYDRAMINE HCL [Concomitant]
     Indication: DERMATITIS ALLERGIC
     Route: 048
  12. NASONEX [Concomitant]
     Indication: MULTIPLE ALLERGIES
  13. SALINE NASAL SPRAY [Concomitant]
  14. AFRIN [Concomitant]
     Indication: NASAL CONGESTION
  15. CODEINE/GUAIFENESIN TABLETS [Concomitant]
     Indication: NASAL CONGESTION
     Dates: start: 20061001
  16. FUROSEMIDE [Concomitant]
     Indication: HYPERTENSION
  17. FUROSEMIDE [Concomitant]
     Indication: CARDIAC FAILURE CONGESTIVE
  18. METOPROLOL SUCCINATE [Concomitant]
     Indication: HYPERTENSION
  19. LISINOPRIL [Concomitant]
     Indication: HYPERTENSION
  20. LISINOPRIL [Concomitant]
     Indication: CARDIAC FAILURE CONGESTIVE
  21. ASPIRIN [Concomitant]
     Indication: CEREBROVASCULAR ACCIDENT PROPHYLAXIS
  22. FELODIPINE [Concomitant]
     Indication: HYPERTENSION
  23. TERAZOSIN HCL [Concomitant]
     Indication: BENIGN PROSTATIC HYPERPLASIA
  24. EZETIMIBE [Concomitant]
     Indication: BLOOD CHOLESTEROL INCREASED
  25. RANITIDINE [Concomitant]
     Indication: GASTROOESOPHAGEAL REFLUX DISEASE
  26. SIMETHICONE [Concomitant]
     Indication: FLATULENCE
  27. VITAMIN E [Concomitant]
     Indication: SUPPLEMENTATION THERAPY
  28. FISH OIL [Concomitant]
     Indication: SUPPLEMENTATION THERAPY
  29. MTV [Concomitant]
     Indication: SUPPLEMENTATION THERAPY

REACTIONS (6)
  - DIARRHOEA [None]
  - DIZZINESS [None]
  - DYSPNOEA [None]
  - NAUSEA [None]
  - VIRAL INFECTION [None]
  - VOMITING [None]
